FAERS Safety Report 5702591-7 (Version None)
Quarter: 2008Q2

REPORT INFORMATION
  Report Type: 
  Country: None (occurrence: None)
  Receive Date: 20080410
  Receipt Date: 20080410
  Transmission Date: 20081010
  Serious: No
  Sender: FDA-Public Use
  Company Number: None

PATIENT
  Age: 69 Year
  Sex: Female
  Weight: 47.1741 kg

DRUGS (1)
  1. HYDROXYCHLOROQUINE  200 MG TABLETS  UNKNOWN [Suspect]
     Indication: SYSTEMIC LUPUS ERYTHEMATOSUS
     Dosage: 400 MG PER DAY TWICE DAILY PO
     Route: 048
     Dates: start: 19960326, end: 20020110

REACTIONS (3)
  - RETINAL TOXICITY [None]
  - VISUAL FIELD DEFECT [None]
  - WEIGHT DECREASED [None]
